FAERS Safety Report 10374432 (Version 1)
Quarter: 2014Q3

REPORT INFORMATION
  Report Type: Spontaneous
  Country: GB (occurrence: GB)
  Receive Date: 20140811
  Receipt Date: 20140811
  Transmission Date: 20150326
  Serious: Yes (Other)
  Sender: FDA-Public Use
  Company Number: GB-009507513-1408GBR001413

PATIENT
  Sex: Female

DRUGS (1)
  1. ZISPIN SOLTAB [Suspect]
     Active Substance: MIRTAZAPINE
     Route: 048

REACTIONS (2)
  - Ileostomy [Unknown]
  - Malabsorption [Unknown]
